FAERS Safety Report 10612456 (Version 3)
Quarter: 2015Q1

REPORT INFORMATION
  Report Type: Report from Study
  Country: US (occurrence: US)
  Receive Date: 20141127
  Receipt Date: 20150107
  Transmission Date: 20150720
  Serious: Yes (Other)
  Sender: FDA-Public Use
  Company Number: US-BIOGENIDEC-2014BI101464

PATIENT
  Age: 67 Year
  Sex: Female

DRUGS (2)
  1. AVONEX [Suspect]
     Active Substance: INTERFERON BETA-1A
     Indication: MULTIPLE SCLEROSIS
     Route: 030
     Dates: start: 19970408
  2. AVONEX [Suspect]
     Active Substance: INTERFERON BETA-1A
     Indication: MULTIPLE SCLEROSIS
     Route: 030

REACTIONS (3)
  - Nausea [Not Recovered/Not Resolved]
  - Nipple exudate bloody [Not Recovered/Not Resolved]
  - Intraductal papilloma of breast [Not Recovered/Not Resolved]

NARRATIVE: CASE EVENT DATE: 20140901
